FAERS Safety Report 11090628 (Version 1)
Quarter: 2015Q2

REPORT INFORMATION
  Report Type: Spontaneous
  Country: US (occurrence: US)
  Receive Date: 20150505
  Receipt Date: 20150505
  Transmission Date: 20150821
  Serious: Yes (Hospitalization, Other)
  Sender: FDA-Public Use
  Company Number: US-PFIZER INC-2015149282

PATIENT
  Age: 7 Month
  Sex: Female
  Weight: 7 kg

DRUGS (5)
  1. R-GENE [Suspect]
     Active Substance: ARGININE HYDROCHLORIDE
     Indication: HYPOCHLORAEMIA
     Dosage: 4 MEQ, EVERY 8 HOURS
     Route: 048
     Dates: start: 20150331
  2. VITAMIN D [Concomitant]
     Active Substance: CHOLECALCIFEROL
     Indication: VITAMIN D DECREASED
     Dosage: 400 UNITS, DAILY
     Route: 048
  3. MORPHINE [Concomitant]
     Active Substance: MORPHINE
     Indication: COUGH
     Dosage: 0.3 MG, AS NEEDED (EVERY 6 HOURS)
     Route: 030
  4. GLYCERIN. [Concomitant]
     Active Substance: GLYCERIN
     Indication: CONSTIPATION
     Dosage: 1/4 OF A CHILD^S SUPPOSITORY, AS NEEDED (DAILY)
     Route: 054
  5. LANSOPRAZOLE. [Concomitant]
     Active Substance: LANSOPRAZOLE
     Indication: PROPHYLAXIS AGAINST GASTROINTESTINAL ULCER
     Dosage: 7 MG, EVERY MORNING (BEFORE BREAKFAST)
     Route: 048

REACTIONS (3)
  - Neonatal respiratory failure [Not Recovered/Not Resolved]
  - Disease progression [Not Recovered/Not Resolved]
  - Off label use [Not Recovered/Not Resolved]

NARRATIVE: CASE EVENT DATE: 20150331
